FAERS Safety Report 7663469-5 (Version None)
Quarter: 2011Q3

REPORT INFORMATION
  Report Type: 
  Country: None (occurrence: None)
  Receive Date: 20110805
  Receipt Date: 20100730
  Transmission Date: 20111222
  Serious: No
  Sender: FDA-Public Use
  Company Number: US-ABBOTT-10P-163-0659942-00

PATIENT
  Sex: Male
  Weight: 86.26 kg

DRUGS (8)
  1. NIASPAN [Suspect]
     Indication: HIGH DENSITY LIPOPROTEIN ABNORMAL
  2. NIASPAN [Suspect]
  3. NIASPAN [Suspect]
  4. PLAVIX [Concomitant]
     Indication: PRODUCT USED FOR UNKNOWN INDICATION
  5. AVODART [Concomitant]
     Indication: PROSTATIC DISORDER
  6. LIPITOR [Concomitant]
     Indication: PRODUCT USED FOR UNKNOWN INDICATION
  7. METOPROLOL TARTRATE [Concomitant]
     Indication: BLOOD PRESSURE
     Dosage: 1/2 IN AM/1/2 IN PM
  8. ASPIRIN [Concomitant]
     Indication: PRODUCT USED FOR UNKNOWN INDICATION

REACTIONS (4)
  - ABDOMINAL DISCOMFORT [None]
  - FLUSHING [None]
  - HYPERHIDROSIS [None]
  - HEART RATE INCREASED [None]
